FAERS Safety Report 23208420 (Version 1)
Quarter: 2023Q4

REPORT INFORMATION
  Report Type: Report from Study
  Country: PH (occurrence: PH)
  Receive Date: 20231121
  Receipt Date: 20231121
  Transmission Date: 20240110
  Serious: Yes (Hospitalization, Other)
  Sender: FDA-Public Use
  Company Number: PH-002147023-NVSC2023PH243092

PATIENT
  Age: 38 Year
  Sex: Female

DRUGS (1)
  1. ENTRESTO [Suspect]
     Active Substance: SACUBITRIL\VALSARTAN
     Indication: Cardiomegaly
     Dosage: 100 MG, BID
     Route: 048

REACTIONS (4)
  - Myocardial infarction [Unknown]
  - Loss of consciousness [Unknown]
  - Pericardial effusion [Unknown]
  - Pleural effusion [Unknown]

NARRATIVE: CASE EVENT DATE: 20231107
